FAERS Safety Report 17377309 (Version 1)
Quarter: 2020Q1

REPORT INFORMATION
  Report Type: Spontaneous
  Country: US (occurrence: US)
  Receive Date: 20200121
  Receipt Date: 20200121
  Transmission Date: 20200409
  Serious: No
  Sender: FDA-Public Use
  Company Number: None

PATIENT
  Age: 36 Year
  Sex: Male

DRUGS (1)
  1. CBD VAPING [Suspect]
     Active Substance: CANNABIDIOL\DEVICE\HERBALS
     Indication: RESPIRATORY DISORDER

REACTIONS (2)
  - Intentional overdose [None]
  - Nicotine dependence [None]
